FAERS Safety Report 14414970 (Version 1)
Quarter: 2018Q1

REPORT INFORMATION
  Report Type: Spontaneous
  Country: US (occurrence: US)
  Receive Date: 20180112
  Receipt Date: 20180112
  Transmission Date: 20180509
  Serious: Yes (Hospitalization)
  Sender: FDA-Public Use
  Company Number: None

PATIENT
  Age: 76 Year
  Sex: Male
  Weight: 89 kg

DRUGS (2)
  1. CASODEX [Suspect]
     Active Substance: BICALUTAMIDE
     Dates: end: 20161109
  2. TRIPTORELIN PAMOATE [Suspect]
     Active Substance: TRIPTORELIN PAMOATE
     Dates: end: 20171115

REACTIONS (7)
  - Nausea [None]
  - Cholelithiasis [None]
  - Abdominal pain [None]
  - Muscle spasms [None]
  - Diverticulitis [None]
  - Pancreatitis [None]
  - Hepatic steatosis [None]

NARRATIVE: CASE EVENT DATE: 20171012
